FAERS Safety Report 7414276-X (Version None)
Quarter: 2011Q2

REPORT INFORMATION
  Report Type: 
  Country: None (occurrence: None)
  Receive Date: 20110411
  Receipt Date: 20110411
  Transmission Date: 20111010
  Serious: Yes (Other)
  Sender: FDA-Public Use
  Company Number: None

PATIENT
  Age: 2 Year
  Sex: Male
  Weight: 14.0615 kg

DRUGS (1)
  1. LORATADINE [Suspect]
     Indication: SEASONAL ALLERGY
     Dosage: 1 TSP ONCE DAILY PO
     Route: 048
     Dates: start: 20110410, end: 20110410

REACTIONS (4)
  - HEADACHE [None]
  - EYE DISORDER [None]
  - SEDATION [None]
  - CRYING [None]
